FAERS Safety Report 9414886 (Version 2)
Quarter: 2013Q3

REPORT INFORMATION
  Report Type: Spontaneous
  Country: TR (occurrence: TR)
  Receive Date: 20130723
  Receipt Date: 20130828
  Transmission Date: 20140515
  Serious: Yes (Other)
  Sender: FDA-Public Use
  Company Number: CHNY2013TR001545

PATIENT
  Age: 16 Year
  Sex: Female

DRUGS (1)
  1. TAVEGYL [Suspect]
     Indication: RHINITIS ALLERGIC
     Dosage: UNK, UNK
     Route: 048

REACTIONS (9)
  - Pharyngeal oedema [Recovered/Resolved]
  - Throat irritation [Recovered/Resolved]
  - Sneezing [Recovered/Resolved]
  - Nasal discomfort [Recovered/Resolved]
  - Eye irritation [Recovered/Resolved]
  - Nerve injury [Recovered/Resolved]
  - Abdominal discomfort [Recovered/Resolved]
  - Insomnia [Recovered/Resolved]
  - Sedation [Recovered/Resolved]
